FAERS Safety Report 6937460-8 (Version None)
Quarter: 2010Q3

REPORT INFORMATION
  Report Type: 
  Country: None (occurrence: None)
  Receive Date: 20100823
  Receipt Date: 20100809
  Transmission Date: 20110219
  Serious: Yes (Hospitalization, Other)
  Sender: FDA-Public Use
  Company Number: SE-ROCHE-720550

PATIENT
  Age: 10 Year
  Sex: Male

DRUGS (13)
  1. MYCOPHENOLATE MOFETIL [Suspect]
     Indication: IMMUNOSUPPRESSION
     Route: 065
  2. GANCICLOVIR [Suspect]
     Dosage: DRUG: GANCYCLOVIR
     Route: 042
  3. ANTI-THYMOCYTE GLOBULIN NOS [Suspect]
     Indication: IMMUNOSUPPRESSION
     Dosage: DRUG: ANTITHYMOCYTE GLOBULINE, INDUCTION THERAPY
     Route: 065
  4. ANTI-THYMOCYTE GLOBULIN NOS [Suspect]
     Route: 065
  5. CYCLOSPORINE [Suspect]
     Indication: IMMUNOSUPPRESSION
     Dosage: DRUG REPORTED AS CYCLOSPORINE A
     Route: 065
  6. PREDNISOLONE [Suspect]
     Indication: IMMUNOSUPPRESSION
     Dosage: DRUG: PREDNISOLON
     Route: 065
  7. PREDNISOLONE [Suspect]
     Dosage: FOR NEXT 02-06 MONTHS
     Route: 065
  8. PREDNISOLONE [Suspect]
     Route: 065
  9. CEFTAZIDIM [Concomitant]
     Indication: INFECTION PROPHYLAXIS
     Route: 042
  10. CEFTAZIDIM [Concomitant]
     Dosage: DRUG: TOBI
     Route: 042
  11. TOBRAMYCIN [Concomitant]
     Indication: INFECTION PROPHYLAXIS
     Dosage: DRUG: TOBI
     Route: 055
  12. NYSTATIN [Concomitant]
  13. TMS [Concomitant]
     Dosage: DRUG: TRIMETHPRIM-SULPHAMETOXASOL (TMS)

REACTIONS (9)
  - CYTOMEGALOVIRUS INFECTION [None]
  - DECREASED APPETITE [None]
  - HEARING IMPAIRED [None]
  - LEUKOPENIA [None]
  - MYCOBACTERIUM ABSCESSUS INFECTION [None]
  - NAUSEA [None]
  - RENAL IMPAIRMENT [None]
  - TRANSPLANT REJECTION [None]
  - WHITE BLOOD CELL DISORDER [None]
